FAERS Safety Report 4546695-3 (Version None)
Quarter: 2005Q1

REPORT INFORMATION
  Report Type: 
  Country: None (occurrence: None)
  Receive Date: 20050105
  Receipt Date: 20041222
  Transmission Date: 20050727
  Serious: Yes (Life-Threatening, Hospitalization)
  Sender: FDA-Public Use
  Company Number: 211355

PATIENT
  Age: 55 Year
  Sex: Female
  Weight: 57 kg

DRUGS (8)
  1. XOLAIR [Suspect]
     Indication: ASTHMA
     Dosage: SEE IMAGE
     Dates: start: 20040101, end: 20040101
  2. XOLAIR [Suspect]
     Indication: ASTHMA
     Dosage: SEE IMAGE
     Dates: start: 20040101, end: 20040101
  3. XOLAIR [Suspect]
     Indication: ASTHMA
     Dosage: SEE IMAGE
     Dates: start: 20040101, end: 20040101
  4. FLUTICASONE (FLUTICASONE PROPIONATE) [Concomitant]
  5. SALMETEROL XINAFOATE (SALMETEROL XINAFOATE) [Concomitant]
  6. VENTOLIN(ALBUTEROL, ALBUTEROL SULFATE) [Concomitant]
  7. MONTELUKAST (MONTELUKAST SODIUM) [Concomitant]
  8. FORADIL [Concomitant]

REACTIONS (6)
  - ASTHMA [None]
  - CONDITION AGGRAVATED [None]
  - DYSPNOEA [None]
  - GENERAL PHYSICAL CONDITION ABNORMAL [None]
  - MEDICATION ERROR [None]
  - RESPIRATORY TRACT INFECTION VIRAL [None]
